FAERS Safety Report 6061821-5 (Version None)
Quarter: 2009Q1

REPORT INFORMATION
  Report Type: 
  Country: None (occurrence: None)
  Receive Date: 20090202
  Receipt Date: 20090122
  Transmission Date: 20090719
  Serious: Yes (Hospitalization, Other)
  Sender: FDA-Public Use
  Company Number: US-ELI_LILLY_AND_COMPANY-US200901003976

PATIENT
  Sex: Male
  Weight: 69.388 kg

DRUGS (19)
  1. BYETTA [Suspect]
     Indication: TYPE 2 DIABETES MELLITUS
     Dosage: 5 UG, 2/D
     Route: 058
     Dates: start: 20060101, end: 20080901
  2. BYETTA [Suspect]
     Dosage: 10 UG, 2/D
     Route: 058
     Dates: start: 20080901, end: 20080101
  3. BYETTA [Suspect]
     Dosage: 10 UG, 2/D
     Route: 058
     Dates: start: 20080101
  4. LASIX [Concomitant]
     Dosage: 120 MG, EACH MORNING
     Route: 048
  5. LASIX [Concomitant]
     Dosage: 80 MG, EACH EVENING
  6. NOVOLOG [Concomitant]
     Dosage: UNK, OTHER
  7. LANTUS [Concomitant]
     Dosage: 50 U, 2/D
     Route: 058
  8. ZOCOR [Concomitant]
     Indication: BLOOD CHOLESTEROL
     Dosage: 10 MG, DAILY (1/D)
     Route: 048
  9. CALCITRIOL [Concomitant]
     Indication: RENAL DISORDER
     Dosage: UNK, 2/D
  10. GABAPENTIN [Concomitant]
     Indication: NEUROPATHY PERIPHERAL
     Dosage: 600 MG, 3/D
  11. GABAPENTIN [Concomitant]
     Dosage: 300 UNK, 2/D
     Route: 048
  12. ASCORBIC ACID [Concomitant]
     Dosage: UNK, UNKNOWN
  13. MULTI-VITAMIN [Concomitant]
     Dosage: UNK, UNKNOWN
  14. COREG [Concomitant]
     Indication: CARDIAC DISORDER
     Dosage: 6.2 MG, 2/D
     Route: 048
  15. CAPTOPRIL [Concomitant]
     Indication: CARDIAC DISORDER
     Dosage: 12.5 MG, 3/D
     Route: 048
  16. ASPIRIN [Concomitant]
     Dosage: 81 MG, DAILY (1/D)
     Route: 048
  17. LEVOTHYROXINE SODIUM [Concomitant]
     Dosage: 175 UG, OTHER
  18. LEVOTHYROXINE SODIUM [Concomitant]
     Dosage: 225 UG, OTHER
  19. SPIRONOLACTONE [Concomitant]
     Indication: CARDIAC DISORDER
     Dosage: 25 MG, DAILY (1/D)
     Route: 048

REACTIONS (7)
  - ATRIAL FIBRILLATION [None]
  - BLINDNESS [None]
  - CARDIAC FAILURE CONGESTIVE [None]
  - EYE HAEMORRHAGE [None]
  - GLYCOSYLATED HAEMOGLOBIN INCREASED [None]
  - INTRACARDIAC THROMBUS [None]
  - THROMBOSIS [None]
